FAERS Safety Report 12638481 (Version 1)
Quarter: 2016Q3

REPORT INFORMATION
  Report Type: Spontaneous
  Country: US (occurrence: US)
  Receive Date: 20160809
  Receipt Date: 20160809
  Transmission Date: 20161109
  Serious: No
  Sender: FDA-Public Use
  Company Number: US-SA-2016SA131241

PATIENT
  Age: 70 Year
  Sex: Male

DRUGS (2)
  1. ALIROCUMAB PREFILLED PEN [Concomitant]
     Active Substance: ALIROCUMAB
     Indication: HYPERLIPIDAEMIA
     Dates: start: 2016
  2. PRALUENT [Suspect]
     Active Substance: ALIROCUMAB
     Indication: HYPERLIPIDAEMIA
     Route: 058
     Dates: start: 2016

REACTIONS (1)
  - Pruritus [Unknown]
